FAERS Safety Report 23620199 (Version 1)
Quarter: 2024Q1

REPORT INFORMATION
  Report Type: Spontaneous
  Country: FR (occurrence: FR)
  Receive Date: 20240312
  Receipt Date: 20240312
  Transmission Date: 20240409
  Serious: Yes (Other)
  Sender: FDA-Public Use
  Company Number: None

PATIENT

DRUGS (3)
  1. LAMICTAL [Suspect]
     Active Substance: LAMOTRIGINE
     Indication: Product administration error
     Dosage: 1 DF
     Route: 048
     Dates: start: 20240218, end: 20240218
  2. BACLOFEN [Suspect]
     Active Substance: BACLOFEN
     Indication: Product administration error
     Dosage: 1 DF
     Route: 048
     Dates: start: 20240218, end: 20240218
  3. VALPROATE SODIUM [Suspect]
     Active Substance: VALPROATE SODIUM
     Indication: Product administration error
     Dosage: 1 DF
     Route: 048
     Dates: start: 20240218, end: 20240218

REACTIONS (3)
  - Pneumonia aspiration [Recovering/Resolving]
  - Product administration error [Recovered/Resolved]
  - Somnolence [Recovering/Resolving]

NARRATIVE: CASE EVENT DATE: 20240218
